FAERS Safety Report 17787166 (Version 1)
Quarter: 2020Q2

REPORT INFORMATION
  Report Type: Spontaneous
  Country: CN (occurrence: CN)
  Receive Date: 20200514
  Receipt Date: 20200514
  Transmission Date: 20200714
  Serious: Yes (Other)
  Sender: FDA-Public Use
  Company Number: CN-BAXTER-2020BAX009941

PATIENT
  Age: 61 Year
  Sex: Male
  Weight: 53 kg

DRUGS (4)
  1. ENDOXAN [Suspect]
     Active Substance: CYCLOPHOSPHAMIDE
     Indication: DIFFUSE LARGE B-CELL LYMPHOMA
     Dosage: ENDOXAN 1.20 GRAM+ NS 250 ML
     Route: 041
     Dates: start: 20200330, end: 20200330
  2. 0.9% SODIUM CHLORIDE INJECTION [Suspect]
     Active Substance: SODIUM CHLORIDE
     Indication: MEDICATION DILUTION
     Dosage: ENDOXAN 1.20 GRAM+ NS 250 ML
     Route: 041
     Dates: start: 20200330, end: 20200330
  3. 0.9% SODIUM CHLORIDE INJECTION [Suspect]
     Active Substance: SODIUM CHLORIDE
     Dosage: AIDASHENG 100 MG+ NS 250 ML
     Route: 041
     Dates: start: 20200330, end: 20200330
  4. AIDASHENG [Suspect]
     Active Substance: EPIRUBICIN HYDROCHLORIDE
     Indication: DIFFUSE LARGE B-CELL LYMPHOMA
     Dosage: AIDASHENG 100 MG+ NS 250 ML
     Route: 041
     Dates: start: 20200330, end: 20200330

REACTIONS (1)
  - Bone marrow failure [Recovered/Resolved]

NARRATIVE: CASE EVENT DATE: 20200410
